FAERS Safety Report 24304562 (Version 1)
Quarter: 2024Q3

REPORT INFORMATION
  Report Type: Other
  Country: US (occurrence: US)
  Receive Date: 20240910
  Receipt Date: 20240910
  Transmission Date: 20241016
  Serious: No
  Sender: SIGMA TAU
  Company Number: US-LEADIANT BIOSCIENCES, INC.-2023STPI000336

PATIENT
  Sex: Female

DRUGS (1)
  1. MATULANE [Suspect]
     Active Substance: PROCARBAZINE HYDROCHLORIDE
     Indication: Brain neoplasm malignant
     Dosage: 100 MILLIGRAMS DAILY ON CYCLE DAYS 8-21
     Route: 048
     Dates: start: 20230109

REACTIONS (3)
  - Weight decreased [Unknown]
  - Platelet count decreased [Unknown]
  - Herpes zoster [Unknown]
